FAERS Safety Report 5777194-9 (Version None)
Quarter: 2008Q2

REPORT INFORMATION
  Report Type: 
  Country: None (occurrence: None)
  Receive Date: 20080618
  Receipt Date: 20080605
  Transmission Date: 20081010
  Serious: Yes (Hospitalization, Other)
  Sender: FDA-Public Use
  Company Number: US-ELI_LILLY_AND_COMPANY-US200806001471

PATIENT
  Age: 76 Year
  Sex: Female

DRUGS (2)
  1. HUMULIN 70/30 [Suspect]
  2. HUMALOG MIX 75/25 [Suspect]
     Dates: start: 20080601

REACTIONS (5)
  - BURNING SENSATION [None]
  - FEELING ABNORMAL [None]
  - HEART RATE INCREASED [None]
  - MYOCARDIAL INFARCTION [None]
  - STENT PLACEMENT [None]
